FAERS Safety Report 24846872 (Version 1)
Quarter: 2025Q1

REPORT INFORMATION
  Report Type: Spontaneous
  Country: US (occurrence: US)
  Receive Date: 20250115
  Receipt Date: 20250115
  Transmission Date: 20250409
  Serious: No
  Sender: MERCK
  Company Number: US-009507513-2501USA002229

PATIENT
  Sex: Female

DRUGS (1)
  1. BELSOMRA [Suspect]
     Active Substance: SUVOREXANT
     Indication: Sleep disorder therapy
     Dosage: 10 MILLIGRAMS AT NIGHT
     Route: 048

REACTIONS (3)
  - Visual impairment [Unknown]
  - Arthritis [Unknown]
  - Product packaging difficult to open [Unknown]
